FAERS Safety Report 15742466 (Version 1)
Quarter: 2018Q4

REPORT INFORMATION
  Report Type: Spontaneous
  Country: US (occurrence: US)
  Receive Date: 20181219
  Receipt Date: 20181219
  Transmission Date: 20190205
  Serious: Yes (Other)
  Sender: FDA-Public Use
  Company Number: PHEH2018US053448

PATIENT
  Sex: Male

DRUGS (1)
  1. TASIGNA [Suspect]
     Active Substance: NILOTINIB
     Indication: CHRONIC MYELOID LEUKAEMIA
     Route: 065
     Dates: start: 20130829, end: 20160116

REACTIONS (10)
  - Diabetes mellitus [Unknown]
  - Hypertension [Unknown]
  - Intermittent claudication [Unknown]
  - Peripheral vascular disorder [Unknown]
  - Cardiovascular disorder [Unknown]
  - Cerebrovascular accident [Unknown]
  - Coronary artery disease [Unknown]
  - Necrosis [Unknown]
  - Arteriosclerosis [Unknown]
  - Peripheral arterial occlusive disease [Unknown]
